FAERS Safety Report 20475851 (Version 1)
Quarter: 2022Q1

REPORT INFORMATION
  Report Type: Spontaneous
  Country: US (occurrence: None)
  Receive Date: 20220215
  Receipt Date: 20220215
  Transmission Date: 20220423
  Serious: Yes (Disabling)
  Sender: FDA-Public Use
  Company Number: None

PATIENT
  Age: 57 Year
  Sex: Female
  Weight: 72.9 kg

DRUGS (1)
  1. PAXLOVID [Suspect]
     Active Substance: NIRMATRELVIR\RITONAVIR
     Indication: Coronavirus test positive
     Dosage: OTHER QUANTITY : 3 TABLET(S);?OTHER FREQUENCY : BID AS DIRECTED;?
     Route: 048
     Dates: start: 20220214

REACTIONS (4)
  - Dysgeusia [None]
  - Ageusia [None]
  - Anosmia [None]
  - Diarrhoea [None]

NARRATIVE: CASE EVENT DATE: 20220214
